FAERS Safety Report 4914254-6 (Version None)
Quarter: 2006Q1

REPORT INFORMATION
  Report Type: 
  Country: None (occurrence: None)
  Receive Date: 20060210
  Receipt Date: 20060127
  Transmission Date: 20060701
  Serious: Yes (Hospitalization)
  Sender: FDA-Public Use
  Company Number: 2005P1000512

PATIENT
  Age: 66 Year
  Sex: Male
  Weight: 90 kg

DRUGS (25)
  1. HALCION [Suspect]
     Indication: ACUTE MYOCARDIAL INFARCTION
     Dosage: IV
     Route: 042
     Dates: start: 20050425, end: 20050425
  2. ABCIXIMAB (ABCIXIMAB) [Interacting]
     Indication: ACUTE MYOCARDIAL INFARCTION
     Dosage: IV
     Route: 042
     Dates: start: 20050425, end: 20050425
  3. SIMVASTATIN [Concomitant]
  4. CLOPIDOGREL [Concomitant]
  5. BISOPROLOL FUMARATE [Concomitant]
  6. TRANDOLARPRIL [Concomitant]
  7. ASPIRIN [Concomitant]
  8. GLYCERYL TRINITRATE [Concomitant]
  9. GLIMEPRIDE [Concomitant]
  10. METOPROLOL [Concomitant]
  11. ISOSORBIDE MONONITRATE [Concomitant]
  12. FLUTICASONE PROPIONATE [Concomitant]
  13. CEFTRIAXONE [Concomitant]
  14. INSULIN [Concomitant]
  15. ENOXAPARIN SODIUM [Concomitant]
  16. ATORVASTATIN CALCIUM [Concomitant]
  17. ALPRAZOLAM [Concomitant]
  18. PROPAFENONE HCL [Concomitant]
  19. QUINIDINE SULFATE [Concomitant]
  20. ACARBOSE [Concomitant]
  21. HEPARIN [Concomitant]
  22. LISINOPRIL [Concomitant]
  23. KETOPROFEN [Concomitant]
  24. CILARZAPRIL [Concomitant]
  25. OFRAMAX [Concomitant]

REACTIONS (6)
  - ATRIAL FIBRILLATION [None]
  - CORONARY ARTERY REOCCLUSION [None]
  - CORONARY ARTERY STENOSIS [None]
  - MYOCARDIAL INFARCTION [None]
  - PUNCTURE SITE HAEMORRHAGE [None]
  - SUBCUTANEOUS HAEMATOMA [None]
